FAERS Safety Report 8818163 (Version 1)
Quarter: 2012Q4

REPORT INFORMATION
  Report Type: 
  Country: NO (occurrence: NO)
  Receive Date: 20121001
  Receipt Date: 20121001
  Transmission Date: 20130627
  Serious: Yes (Other)
  Sender: FDA-Public Use
  Company Number: NO-BAXTER-2012BAX017784

PATIENT
  Sex: Male

DRUGS (5)
  1. IFOSFAMIDE [Suspect]
     Indication: TESTICULAR CANCER
  2. ETOPOSIDE [Suspect]
     Indication: TESTICULAR CANCER
  3. CISPLATIN [Suspect]
     Indication: TESTICULAR CANCER
  4. ALLOPURINOL [Concomitant]
     Indication: DRUG USE FOR UNKNOWN INDICATION
  5. G-CSF [Concomitant]
     Indication: DRUG USE FOR UNKNOWN INDICATION

REACTIONS (12)
  - Metastases to lung [Recovered/Resolved]
  - Teratoma [Recovered/Resolved]
  - Aplasia [Recovered/Resolved]
  - Febrile neutropenia [Recovered/Resolved]
  - Enterocolitis [Recovered/Resolved]
  - Neuropathy peripheral [Not Recovered/Not Resolved]
  - Nausea [Recovered/Resolved]
  - Vomiting [Recovered/Resolved]
  - Diarrhoea [Recovered/Resolved]
  - Disturbance in attention [Not Recovered/Not Resolved]
  - Tinnitus [Not Recovered/Not Resolved]
  - Fatigue [Not Recovered/Not Resolved]
